FAERS Safety Report 5018215-0 (Version None)
Quarter: 2006Q2

REPORT INFORMATION
  Report Type: 
  Country: None (occurrence: None)
  Receive Date: 20060530
  Receipt Date: 20060515
  Transmission Date: 20061013
  Serious: Yes (Other)
  Sender: FDA-Public Use
  Company Number: 2004118905

PATIENT
  Age: 73 Year
  Sex: Female
  Weight: 58.9676 kg

DRUGS (8)
  1. CELEBREX [Suspect]
     Indication: OSTEOPOROSIS
     Dosage: 200 MG (200 MG, 1 IN 1 D), ORAL
     Route: 048
     Dates: end: 20040101
  2. PREMARIN [Concomitant]
  3. PREMARIN [Concomitant]
  4. HYDROCODONE BITARTRATE [Concomitant]
  5. SINEMET [Concomitant]
  6. LIPITOR [Concomitant]
  7. ACTONEL [Concomitant]
  8. APRESOLINE [Concomitant]

REACTIONS (8)
  - ARRHYTHMIA [None]
  - BASAL CELL CARCINOMA [None]
  - BLOOD PRESSURE SYSTOLIC INCREASED [None]
  - DRUG INEFFECTIVE [None]
  - DRY SKIN [None]
  - PRURITUS [None]
  - RASH [None]
  - TREMOR [None]
